FAERS Safety Report 8290879-8 (Version None)
Quarter: 2012Q2

REPORT INFORMATION
  Report Type: 
  Country: None (occurrence: None)
  Receive Date: 20120417
  Receipt Date: 20110809
  Transmission Date: 20120825
  Serious: No
  Sender: FDA-Public Use
  Company Number: US-ASTRAZENECA-2011SE47993

PATIENT

DRUGS (5)
  1. NEXIUM [Suspect]
     Route: 048
  2. ZOLOFT [Concomitant]
  3. ALPRAZOLAM [Concomitant]
  4. UNIPHYL [Concomitant]
  5. ACETAZOLAMIDE [Concomitant]

REACTIONS (3)
  - VENOUS INSUFFICIENCY [None]
  - ASTHMA [None]
  - BREAST CYST [None]
